FAERS Safety Report 11216861 (Version 1)
Quarter: 2015Q2

REPORT INFORMATION
  Report Type: Spontaneous
  Country: US (occurrence: None)
  Receive Date: 20150623
  Receipt Date: 20150623
  Transmission Date: 20150821
  Serious: No
  Sender: FDA-Public Use
  Company Number: None

PATIENT
  Age: 84 Year
  Sex: Female
  Weight: 56.7 kg

DRUGS (8)
  1. ESTER C [Concomitant]
  2. CALCIUM CITRATE [Concomitant]
     Active Substance: CALCIUM CITRATE
  3. DUREZOL [Suspect]
     Active Substance: DIFLUPREDNATE
     Indication: PREOPERATIVE CARE
     Dosage: 4 X DEC TO 3 2 INTO THE THE EYE
     Dates: start: 20150603, end: 20150622
  4. DUREZOL [Suspect]
     Active Substance: DIFLUPREDNATE
     Indication: CATARACT
     Dosage: 4 X DEC TO 3 2 INTO THE THE EYE
     Dates: start: 20150603, end: 20150622
  5. METROPOLOL AMLODIPINE [Concomitant]
  6. DUREZOL [Suspect]
     Active Substance: DIFLUPREDNATE
     Indication: POSTOPERATIVE CARE
     Dosage: 4 X DEC TO 3 2 INTO THE THE EYE
     Dates: start: 20150603, end: 20150622
  7. BABY ASPIRIN [Concomitant]
     Active Substance: ASPIRIN
  8. MULTI VITAMINS [Concomitant]

REACTIONS (4)
  - Dry eye [None]
  - Diplopia [None]
  - Vision blurred [None]
  - Pigmentation disorder [None]

NARRATIVE: CASE EVENT DATE: 20150603
